FAERS Safety Report 4589306-3 (Version None)
Quarter: 2005Q1

REPORT INFORMATION
  Report Type: 
  Country: None (occurrence: None)
  Receive Date: 20050223
  Receipt Date: 20050124
  Transmission Date: 20050727
  Serious: Yes (Hospitalization)
  Sender: FDA-Public Use
  Company Number: 200510562US

PATIENT
  Sex: Male
  Weight: 61.68 kg

DRUGS (9)
  1. TAXOTERE [Suspect]
     Indication: PROSTATE CANCER
     Route: 042
     Dates: start: 20040827, end: 20050118
  2. CELECOXIB [Suspect]
     Indication: PROSTATE CANCER
     Route: 048
     Dates: start: 20040827, end: 20050118
  3. GOSERELIN [Concomitant]
     Dosage: DOSE: INJECTION
  4. IRBESARTAN [Concomitant]
     Dosage: DOSE: UNK
  5. DIOCTYL SODIUM SULFOSUCCINATE [Concomitant]
     Dosage: DOSE: UNK
  6. SENNA [Concomitant]
     Dosage: DOSE: UNK
  7. TEMAZEPAM [Concomitant]
     Dosage: DOSE: UNK
  8. MORPHINE SULFATE [Concomitant]
     Dosage: DOSE: UNK
  9. TERAZOSIN [Concomitant]
     Dosage: DOSE: UNK

REACTIONS (8)
  - BLOOD ALBUMIN DECREASED [None]
  - DEEP VEIN THROMBOSIS [None]
  - HAEMATOCRIT DECREASED [None]
  - HAEMOGLOBIN DECREASED [None]
  - HYPOTENSION [None]
  - INTERNATIONAL NORMALISED RATIO INCREASED [None]
  - OEDEMA PERIPHERAL [None]
  - PROTEIN TOTAL DECREASED [None]
